FAERS Safety Report 7316131-2 (Version None)
Quarter: 2011Q1

REPORT INFORMATION
  Report Type: 
  Country: None (occurrence: None)
  Receive Date: 20110225
  Receipt Date: 20110221
  Transmission Date: 20110831
  Serious: Yes (Hospitalization, Other)
  Sender: FDA-Public Use
  Company Number: US-PFIZER INC-2011037837

PATIENT
  Sex: Male
  Weight: 90.703 kg

DRUGS (3)
  1. LYRICA [Suspect]
     Indication: CONVULSION
     Dosage: 500 MG, 3X/DAY
     Route: 048
     Dates: start: 20101115
  2. DILANTIN [Suspect]
     Indication: CONVULSION
     Dosage: 500 MG, 3X/DAY
     Route: 048
     Dates: start: 20080101, end: 20090101
  3. PHENYTOIN [Suspect]
     Indication: CONVULSION
     Dosage: 500 MG, 3X/DAY
     Dates: start: 20090101, end: 20101101

REACTIONS (2)
  - GRAND MAL CONVULSION [None]
  - TEMPORAL LOBE EPILEPSY [None]
